FAERS Safety Report 14223636 (Version 1)
Quarter: 2017Q4

REPORT INFORMATION
  Report Type: Spontaneous
  Country: US (occurrence: US)
  Receive Date: 20171125
  Receipt Date: 20171125
  Transmission Date: 20180321
  Serious: Yes (Other)
  Sender: FDA-Public Use
  Company Number: PHEH2017US037469

PATIENT
  Sex: Female

DRUGS (1)
  1. ZOMETA [Suspect]
     Active Substance: ZOLEDRONIC ACID
     Indication: NON-SMALL CELL LUNG CANCER STAGE IV
     Dosage: UNK
     Route: 065
     Dates: start: 20170327

REACTIONS (2)
  - Malignant neoplasm progression [Unknown]
  - Non-small cell lung cancer stage IV [Unknown]

NARRATIVE: CASE EVENT DATE: 20170721
